FAERS Safety Report 9710810 (Version 1)
Quarter: 2013Q4

REPORT INFORMATION
  Report Type: Spontaneous
  Country: GB (occurrence: GB)
  Receive Date: 20131126
  Receipt Date: 20131126
  Transmission Date: 20140711
  Serious: Yes (Other)
  Sender: FDA-Public Use
  Company Number: GB-TEVA-445366ISR

PATIENT
  Age: 72 Year
  Sex: Female
  Weight: 60.32 kg

DRUGS (7)
  1. ALENDRONIC ACID [Suspect]
     Route: 002
     Dates: start: 20121130
  2. ASPIRIN [Concomitant]
  3. OSTEOGUARD [Concomitant]
  4. ADCAL-D3 [Concomitant]
  5. ATENOLOL [Concomitant]
  6. ATORVASTATIN [Concomitant]
  7. RAMIPRIL [Concomitant]

REACTIONS (5)
  - Malaise [Recovered/Resolved with Sequelae]
  - Jaundice [Recovered/Resolved]
  - Nausea [Recovered/Resolved with Sequelae]
  - Renal pain [Recovered/Resolved with Sequelae]
  - Fatigue [Recovered/Resolved with Sequelae]
